FAERS Safety Report 8212141-1 (Version None)
Quarter: 2012Q1

REPORT INFORMATION
  Report Type: 
  Country: None (occurrence: None)
  Receive Date: 20120315
  Receipt Date: 20120313
  Transmission Date: 20120608
  Serious: Yes (Hospitalization)
  Sender: FDA-Public Use
  Company Number: PHHY2012AR022480

PATIENT
  Sex: Male

DRUGS (2)
  1. LOSARTAN POTASSIUM [Concomitant]
  2. DIOVAN [Suspect]
     Indication: HYPERTENSION
     Dosage: 160 MG, DAILY
     Dates: start: 20110101

REACTIONS (3)
  - CHEST PAIN [None]
  - ABDOMINAL PAIN UPPER [None]
  - CORONARY ARTERY DISEASE [None]
